FAERS Safety Report 11183944 (Version 1)
Quarter: 2015Q2

REPORT INFORMATION
  Report Type: Spontaneous
  Country: US (occurrence: None)
  Receive Date: 20150611
  Receipt Date: 20150611
  Transmission Date: 20150821
  Serious: No
  Sender: FDA-Public Use
  Company Number: None

PATIENT
  Age: 60 Year
  Sex: Female

DRUGS (1)
  1. MYCOPHENOLATE [Suspect]
     Active Substance: MYCOPHENOLIC ACID
     Indication: TRANSPLANT
     Dosage: MYCOPHENOLATE 500MG TAB 2 TABS TID ORAL
     Route: 048
     Dates: start: 20140212

REACTIONS (2)
  - Joint swelling [None]
  - Rash [None]

NARRATIVE: CASE EVENT DATE: 20150609
